FAERS Safety Report 8965879 (Version 1)
Quarter: 2012Q4

REPORT INFORMATION
  Report Type: Spontaneous
  Country: US (occurrence: None)
  Receive Date: 20121206
  Receipt Date: 20121206
  Transmission Date: 20130627
  Serious: Yes (Other)
  Sender: FDA-Public Use
  Company Number: 100511-000090

PATIENT
  Age: 48 Year
  Sex: Female

DRUGS (2)
  1. MEANINGFUL BEAUTY ANTIOXIDANT DAY CREME SPF 20 [Suspect]
     Dosage: twice day dermal
     Dates: start: 20100401
  2. NICARDIS [Concomitant]

REACTIONS (3)
  - Pruritus [None]
  - Burning sensation [None]
  - Throat tightness [None]
